FAERS Safety Report 7559740-8 (Version None)
Quarter: 2011Q2

REPORT INFORMATION
  Report Type: 
  Country: None (occurrence: None)
  Receive Date: 20110621
  Receipt Date: 20110610
  Transmission Date: 20111010
  Serious: Yes (Other)
  Sender: FDA-Public Use
  Company Number: SE-ROCHE-782052

PATIENT
  Age: 30 Year
  Sex: Female

DRUGS (1)
  1. MIRCERA [Suspect]
     Route: 065

REACTIONS (2)
  - ANAEMIA [None]
  - GENITAL HAEMORRHAGE [None]
